FAERS Safety Report 8090262-4 (Version None)
Quarter: 2012Q1

REPORT INFORMATION
  Report Type: 
  Country: None (occurrence: None)
  Receive Date: 20120129
  Receipt Date: 20111129
  Transmission Date: 20120608
  Serious: No
  Sender: FDA-Public Use
  Company Number: US-ABBOTT-11P-163-0872477-00

PATIENT
  Sex: Female

DRUGS (13)
  1. MULTIVITAMIN [Concomitant]
     Indication: MULTI-VITAMIN DEFICIENCY
  2. B3 VIT [Concomitant]
     Indication: VITAMIN SUPPLEMENTATION
  3. ORTHO TRI-CYCLEN [Concomitant]
     Indication: CONTRACEPTION
  4. CANASA [Concomitant]
     Indication: COLITIS
  5. PROZAC [Concomitant]
     Indication: ANXIETY
  6. HUMIRA [Suspect]
     Indication: CROHN'S DISEASE
     Dates: start: 20111104
  7. FOLIC ACID DHA [Concomitant]
     Indication: FOLATE DEFICIENCY
  8. ALIGN PROBIOTIC [Concomitant]
     Indication: PROBIOTIC THERAPY
     Dosage: DAILY
  9. DIAZEPAM [Concomitant]
     Indication: ANXIETY
  10. UNKNOWN MEDICATION [Concomitant]
     Indication: PRODUCT USED FOR UNKNOWN INDICATION
     Dosage: EACH NIGHT
     Route: 054
  11. ASACOL [Concomitant]
     Indication: COLITIS
  12. CANASA [Concomitant]
     Indication: CROHN'S DISEASE
  13. CLONAZEPAM [Concomitant]
     Indication: ANXIETY

REACTIONS (6)
  - ABDOMINAL PAIN [None]
  - RHINITIS [None]
  - DIARRHOEA [None]
  - FATIGUE [None]
  - OROPHARYNGEAL PAIN [None]
  - HAEMATOCHEZIA [None]
